FAERS Safety Report 15097773 (Version 1)
Quarter: 2018Q2

REPORT INFORMATION
  Report Type: Spontaneous
  Country: US (occurrence: US)
  Receive Date: 20180611
  Receipt Date: 20180611
  Transmission Date: 20180711
  Serious: No
  Sender: FDA-Public Use
  Company Number: None

PATIENT
  Age: 42 Year
  Sex: Female

DRUGS (2)
  1. CYANOCOBALIMIN [Concomitant]
  2. DUPIXENT [Suspect]
     Active Substance: DUPILUMAB
     Dates: start: 20180406, end: 20180611

REACTIONS (1)
  - Alopecia [None]

NARRATIVE: CASE EVENT DATE: 20180406
